FAERS Safety Report 5929957-4 (Version None)
Quarter: 2008Q4

REPORT INFORMATION
  Report Type: 
  Country: None (occurrence: None)
  Receive Date: 20081024
  Receipt Date: 20081013
  Transmission Date: 20090506
  Serious: Yes (Death, Hospitalization)
  Sender: FDA-Public Use
  Company Number: IN-BAXTER-2008BH010951

PATIENT
  Sex: Female
  Weight: 68 kg

DRUGS (7)
  1. DIANEAL [Suspect]
     Indication: RENAL FAILURE CHRONIC
     Route: 033
     Dates: start: 20080901, end: 20081002
  2. DIANEAL [Suspect]
     Route: 033
     Dates: start: 20080901, end: 20081002
  3. MIXTARD HUMAN 70/30 [Concomitant]
     Indication: DRUG USE FOR UNKNOWN INDICATION
     Route: 065
     Dates: end: 20081002
  4. MIXTARD HUMAN 70/30 [Concomitant]
     Route: 065
     Dates: end: 20081002
  5. ARKAMIN [Concomitant]
     Indication: DRUG USE FOR UNKNOWN INDICATION
     Route: 065
     Dates: end: 20081002
  6. AMLONG-A [Concomitant]
     Indication: DRUG USE FOR UNKNOWN INDICATION
     Route: 065
     Dates: end: 20081002
  7. MONOTRADE [Concomitant]
     Indication: DRUG USE FOR UNKNOWN INDICATION
     Route: 065
     Dates: end: 20081002

REACTIONS (2)
  - HYPOTENSION [None]
  - PERITONITIS [None]
